FAERS Safety Report 13517179 (Version 1)
Quarter: 2017Q2

REPORT INFORMATION
  Report Type: Spontaneous
  Country: US (occurrence: US)
  Receive Date: 20170505
  Receipt Date: 20170505
  Transmission Date: 20170830
  Serious: Yes (Hospitalization)
  Sender: FDA-Public Use
  Company Number: None

PATIENT
  Age: 51 Year
  Sex: Male
  Weight: 94.6 kg

DRUGS (12)
  1. CLARITIN [Concomitant]
     Active Substance: LORATADINE
  2. ZOFRAN [Concomitant]
     Active Substance: ONDANSETRON HYDROCHLORIDE
  3. VANCOMYCIN [Suspect]
     Active Substance: VANCOMYCIN
     Indication: LOCALISED INFECTION
     Dosage: 1750MG/0.9%NS Q12HRS IVPB
     Route: 042
  4. MVI [Concomitant]
     Active Substance: VITAMINS
  5. PEPCID [Concomitant]
     Active Substance: FAMOTIDINE
  6. HUMALOG [Concomitant]
     Active Substance: INSULIN LISPRO
  7. OXYCODONE [Concomitant]
     Active Substance: OXYCODONE
  8. NS [Concomitant]
     Active Substance: SODIUM CHLORIDE
  9. DAKINS FULL [Concomitant]
     Active Substance: SODIUM HYPOCHLORITE
  10. LACTOBACILLUS ACIDOPHILUS\LACTOBACILLUS BULGARICUS [Concomitant]
     Active Substance: LACTOBACILLUS ACIDOPHILUS\LACTOBACILLUS DELBRUECKII SUBSP. BULGARICUS
  11. NPH INSULIN [Concomitant]
     Active Substance: INSULIN BEEF
  12. LOVENOX [Concomitant]
     Active Substance: ENOXAPARIN SODIUM

REACTIONS (1)
  - Acute kidney injury [None]

NARRATIVE: CASE EVENT DATE: 20161229
